FAERS Safety Report 6905171-0 (Version None)
Quarter: 2010Q3

REPORT INFORMATION
  Report Type: 
  Country: None (occurrence: None)
  Receive Date: 20100804
  Receipt Date: 20091022
  Transmission Date: 20110219
  Serious: No
  Sender: FDA-Public Use
  Company Number: US-PFIZER INC-2009241492

PATIENT
  Sex: Female
  Weight: 44.5 kg

DRUGS (2)
  1. LYRICA [Suspect]
     Indication: FIBROMYALGIA
     Dosage: 75 MG, 2X/DAY
     Dates: start: 20090601, end: 20090609
  2. PAXIL [Concomitant]

REACTIONS (4)
  - FEELING ABNORMAL [None]
  - MENORRHAGIA [None]
  - MENSTRUATION IRREGULAR [None]
  - RASH [None]
